FAERS Safety Report 8923047 (Version 1)
Quarter: 2012Q4

REPORT INFORMATION
  Report Type: 
  Country: JP (occurrence: JP)
  Receive Date: 20121124
  Receipt Date: 20121124
  Transmission Date: 20130627
  Serious: Yes (Other)
  Sender: FDA-Public Use
  Company Number: PHHY2012JP097085

PATIENT

DRUGS (1)
  1. EXELON PATCH [Suspect]
     Dosage: 13.5 mg, Daily
     Route: 062

REACTIONS (2)
  - Open fracture [Unknown]
  - Electrocardiogram abnormal [Unknown]
